FAERS Safety Report 9833027 (Version 2)
Quarter: 2014Q1

REPORT INFORMATION
  Report Type: Spontaneous
  Country: US (occurrence: US)
  Receive Date: 20140121
  Receipt Date: 20140214
  Transmission Date: 20141002
  Serious: Yes (Congenital Anomaly, Other)
  Sender: FDA-Public Use
  Company Number: US-PFIZER INC-2014015571

PATIENT
  Sex: Male

DRUGS (8)
  1. ZOLOFT [Suspect]
     Indication: DEPRESSION
     Dosage: UNK
     Route: 064
     Dates: start: 20030505
  2. SERTRALINE HCL [Suspect]
     Indication: DEPRESSION
     Dosage: UNK
     Route: 064
     Dates: start: 20070904
  3. PRO-AIR [Concomitant]
     Dosage: UNK
     Route: 064
  4. CLARINEX-D [Concomitant]
     Dosage: UNK
     Route: 064
  5. ALPRAZOLAM [Concomitant]
     Dosage: UNK
     Route: 064
  6. FLOVENT [Concomitant]
     Dosage: UNK
     Route: 064
  7. PREDNISONE [Concomitant]
     Dosage: UNK
     Route: 064
  8. PAROXETINE [Concomitant]
     Dosage: UNK
     Route: 064

REACTIONS (4)
  - Maternal exposure during pregnancy [Unknown]
  - Patent ductus arteriosus [Unknown]
  - Atrial septal defect [Unknown]
  - Language disorder [Unknown]
